FAERS Safety Report 21083222 (Version 1)
Quarter: 2022Q3

REPORT INFORMATION
  Report Type: Spontaneous
  Country: None (occurrence: US)
  Receive Date: 20220714
  Receipt Date: 20220714
  Transmission Date: 20221027
  Serious: Yes (Life-Threatening, Hospitalization)
  Sender: FDA-Public Use
  Company Number: US-Nostrum Laboratories, Inc.-2130883

PATIENT
  Age: 29 Year
  Sex: Female

DRUGS (1)
  1. DOXYCYCLINE HYCLATE [Suspect]
     Active Substance: DOXYCYCLINE HYCLATE
     Indication: Pharyngitis
     Route: 048

REACTIONS (2)
  - Neutropenia [Recovered/Resolved]
  - Pharyngitis [Recovered/Resolved]
